FAERS Safety Report 8393071-1 (Version None)
Quarter: 2012Q2

REPORT INFORMATION
  Report Type: 
  Country: None (occurrence: None)
  Receive Date: 20120529
  Receipt Date: 20120403
  Transmission Date: 20120825
  Serious: No
  Sender: FDA-Public Use
  Company Number: US-ABBOTT-12P-163-0921459-00

PATIENT
  Sex: Male
  Weight: 88.53 kg

DRUGS (2)
  1. ANDROGEL [Suspect]
     Dosage: PUMP
     Dates: start: 20120312
  2. ANDROGEL [Suspect]
     Indication: BLOOD TESTOSTERONE DECREASED
     Dosage: PUMP
     Dates: start: 20110601

REACTIONS (1)
  - DRUG INEFFECTIVE [None]
